FAERS Safety Report 4273802-2 (Version None)
Quarter: 2004Q1

REPORT INFORMATION
  Report Type: 
  Country: None (occurrence: None)
  Receive Date: 20040115
  Receipt Date: 20040106
  Transmission Date: 20041129
  Serious: Yes (Other)
  Sender: FDA-Public Use
  Company Number: NSADSS2002036610

PATIENT
  Age: 54 Year
  Sex: Female
  Weight: 77.1115 kg

DRUGS (6)
  1. REMICADE [Suspect]
     Indication: RHEUMATOID ARTHRITIS
     Dosage: INTRAVENOUS DRIP
     Route: 041
     Dates: start: 20011201
  2. REMICADE [Suspect]
     Indication: RHEUMATOID ARTHRITIS
     Dosage: INTRAVENOUS DRIP
     Route: 041
     Dates: start: 20030301
  3. PLAQUENIL [Concomitant]
  4. PREMARIN [Concomitant]
  5. ZOLOFT [Concomitant]
  6. SYNTHROID [Concomitant]

REACTIONS (4)
  - MONONEURITIS [None]
  - MYOPATHY [None]
  - PERIPHERAL PARALYSIS [None]
  - TENDON RUPTURE [None]
